FAERS Safety Report 18340743 (Version 2)
Quarter: 2020Q4

REPORT INFORMATION
  Report Type: Spontaneous
  Country: US (occurrence: US)
  Receive Date: 20201003
  Receipt Date: 20201016
  Transmission Date: 20210113
  Serious: Yes (Other)
  Sender: FDA-Public Use
  Company Number: US-AMGEN-USASP2020157189

PATIENT
  Sex: Male

DRUGS (14)
  1. HECTOROL [Concomitant]
     Active Substance: DOXERCALCIFEROL
     Dosage: 9 MICROGRAM, AFTER DIALYSIS
     Route: 065
  2. PARSABIV [Suspect]
     Active Substance: ETELCALCETIDE HYDROCHLORIDE
     Dosage: 7.5 UNK
     Route: 065
     Dates: start: 20200817
  3. HECTOROL [Concomitant]
     Active Substance: DOXERCALCIFEROL
     Dosage: 5 MICROGRAM
     Route: 065
     Dates: start: 20200529
  4. HECTOROL [Concomitant]
     Active Substance: DOXERCALCIFEROL
     Dosage: 5 MILLIGRAM
     Route: 065
     Dates: start: 20200715
  5. SENSIPAR [Suspect]
     Active Substance: CINACALCET HYDROCHLORIDE
     Indication: HYPERPARATHYROIDISM SECONDARY
     Dosage: 150 MILLIGRAM, QD (90 MG IN THE AM AND 60 MG IN THE PM)
     Route: 065
     Dates: end: 20200128
  6. PARSABIV [Suspect]
     Active Substance: ETELCALCETIDE HYDROCHLORIDE
     Dosage: 10 MILLIGRAM, 3 TIMES/WK
     Route: 065
     Dates: start: 202007, end: 20200923
  7. PARSABIV [Suspect]
     Active Substance: ETELCALCETIDE HYDROCHLORIDE
     Dosage: 5 UNK
     Route: 065
     Dates: start: 20200715
  8. HECTOROL [Concomitant]
     Active Substance: DOXERCALCIFEROL
     Dosage: 7 UNK
     Route: 065
     Dates: start: 20200904
  9. HECTOROL [Concomitant]
     Active Substance: DOXERCALCIFEROL
     Dosage: 9 UNK
     Route: 065
     Dates: start: 20200921
  10. PARSABIV [Suspect]
     Active Substance: ETELCALCETIDE HYDROCHLORIDE
     Indication: HYPERPARATHYROIDISM SECONDARY
     Dosage: 5 MILLIGRAM
     Route: 065
  11. HECTOROL [Concomitant]
     Active Substance: DOXERCALCIFEROL
     Dosage: 6 MILLIGRAM
     Route: 065
     Dates: start: 20200520
  12. HECTOROL [Concomitant]
     Active Substance: DOXERCALCIFEROL
     Dosage: 6 MICROGRAM
     Route: 065
     Dates: start: 20200826
  13. SENSIPAR [Suspect]
     Active Substance: CINACALCET HYDROCHLORIDE
     Dosage: UNK, PROPOSED DOSE OF 150 MGC/DAY
     Route: 065
  14. PARSABIV [Suspect]
     Active Substance: ETELCALCETIDE HYDROCHLORIDE
     Dosage: 9 UNK
     Route: 065
     Dates: start: 20200921

REACTIONS (8)
  - Hormone level abnormal [Not Recovered/Not Resolved]
  - Therapeutic product effect delayed [Unknown]
  - Pathological fracture [Unknown]
  - Nausea [Unknown]
  - Musculoskeletal disorder [Not Recovered/Not Resolved]
  - Drug intolerance [Unknown]
  - Blood parathyroid hormone increased [Unknown]
  - Vomiting [Unknown]
